FAERS Safety Report 16490238 (Version 2)
Quarter: 2019Q2

REPORT INFORMATION
  Report Type: Spontaneous
  Country: US (occurrence: US)
  Receive Date: 20190628
  Receipt Date: 20190628
  Transmission Date: 20190711
  Serious: Yes (Hospitalization)
  Sender: FDA-Public Use
  Company Number: US-BAYER-2019-118178

PATIENT

DRUGS (2)
  1. STIVARGA [Suspect]
     Active Substance: REGORAFENIB
     Indication: GASTROINTESTINAL STROMAL TUMOUR
     Dosage: DAILY DOSE OF 160 MG FOR 21 DAYS OF 28 DAY CYCLE
     Route: 048
  2. SUTENT [Suspect]
     Active Substance: SUNITINIB MALATE
     Indication: GASTROINTESTINAL STROMAL TUMOUR
     Dosage: DAILY DOSE 50 MG
     Route: 048
     Dates: start: 20190425

REACTIONS (4)
  - Pain in extremity [None]
  - Fatigue [None]
  - Product dose omission [None]
  - Neck pain [Recovered/Resolved]
